FAERS Safety Report 10220900 (Version 1)
Quarter: 2014Q2

REPORT INFORMATION
  Report Type: Spontaneous
  Country: US (occurrence: None)
  Receive Date: 20140605
  Receipt Date: 20140605
  Transmission Date: 20141212
  Serious: No
  Sender: FDA-Public Use
  Company Number: None

PATIENT
  Age: 9 Year
  Sex: Male
  Weight: 21.77 kg

DRUGS (1)
  1. ZOLOFT [Suspect]
     Indication: OBSESSIVE-COMPULSIVE DISORDER
     Route: 048
     Dates: start: 20140401, end: 20140429

REACTIONS (4)
  - Paranoia [None]
  - Mania [None]
  - Abnormal behaviour [None]
  - Euphoric mood [None]
